FAERS Safety Report 8388433-2 (Version None)
Quarter: 2012Q2

REPORT INFORMATION
  Report Type: 
  Country: None (occurrence: None)
  Receive Date: 20120525
  Receipt Date: 20120517
  Transmission Date: 20120825
  Serious: Yes (Hospitalization, Other)
  Sender: FDA-Public Use
  Company Number: US-ASTRAZENECA-2012SE15014

PATIENT
  Age: 47 Year
  Sex: Female
  Weight: 81.6 kg

DRUGS (17)
  1. DEPOLUPIRON [Concomitant]
     Indication: MENSTRUAL DISORDER
     Dosage: A SHOT ONCE A MONTH
  2. GABAPENTIN [Concomitant]
     Indication: NERVOUS SYSTEM DISORDER
     Route: 048
  3. GABAPENTIN [Concomitant]
     Indication: SPINAL DISORDER
     Route: 048
  4. DEPAKOTE [Concomitant]
     Indication: HEADACHE
     Route: 048
  5. CYCLOBENAZPRINE [Concomitant]
     Indication: MUSCLE RELAXANT THERAPY
     Dosage: 5 MG, 1 TAB 3X PRN
  6. DEPAKOTE [Concomitant]
     Indication: CONVULSION PROPHYLAXIS
     Route: 048
  7. ZANTAC [Suspect]
     Indication: GASTROOESOPHAGEAL REFLUX DISEASE
     Route: 065
  8. MULTI-VITAMIN [Concomitant]
     Dosage: DAILY
     Route: 048
  9. PREVACID [Concomitant]
  10. ALPRAZOLAM [Concomitant]
     Indication: PANIC ATTACK
     Dosage: 1TABLET, 2-3 TIMES, AS NEEDED
  11. NEXIUM [Suspect]
     Route: 048
  12. ZYRTEC [Concomitant]
     Indication: HYPERSENSITIVITY
     Dosage: DAILY
     Route: 048
  13. LEVOTHYROXINE SODIUM [Concomitant]
     Indication: THYROID DISORDER
     Dosage: DAILY
     Route: 048
  14. SUCRALFATE [Concomitant]
     Indication: PROPHYLAXIS AGAINST GASTROINTESTINAL ULCER
  15. TRAMADOL HCL [Concomitant]
     Indication: PAIN
     Dosage: 50 MG, 1 TO 2 TABLETS 4 TIMES A DAY AS NEEDED
  16. DEMEROL [Concomitant]
  17. PREMPRO [Concomitant]
     Dosage: 0.3 MG/1.5 MG ONCE IN THE MORNING

REACTIONS (25)
  - HIATUS HERNIA [None]
  - DRUG INEFFECTIVE [None]
  - ROAD TRAFFIC ACCIDENT [None]
  - POST-TRAUMATIC NECK SYNDROME [None]
  - INTERVERTEBRAL DISC PROTRUSION [None]
  - GASTRIC PH DECREASED [None]
  - SENSATION OF FOREIGN BODY [None]
  - PANIC ATTACK [None]
  - GASTROOESOPHAGEAL REFLUX DISEASE [None]
  - HYPERACUSIS [None]
  - MALAISE [None]
  - INTENTIONAL DRUG MISUSE [None]
  - SCIATIC NERVE INJURY [None]
  - OROPHARYNGEAL PLAQUE [None]
  - HYPERHIDROSIS [None]
  - INTERVERTEBRAL DISC DEGENERATION [None]
  - URINARY INCONTINENCE [None]
  - DYSPNOEA [None]
  - MUSCLE SPASMS [None]
  - ENDOMETRIOSIS [None]
  - DYSPEPSIA [None]
  - DYSPHAGIA [None]
  - MUSCULOSKELETAL CHEST PAIN [None]
  - FOREIGN BODY [None]
  - VOMITING [None]
